FAERS Safety Report 7975774-3 (Version None)
Quarter: 2011Q4

REPORT INFORMATION
  Report Type: 
  Country: None (occurrence: None)
  Receive Date: 20111213
  Receipt Date: 20111005
  Transmission Date: 20120403
  Serious: No
  Sender: FDA-Public Use
  Company Number: US-AMGEN-USASP2011051529

PATIENT
  Age: 45 Year
  Sex: Female

DRUGS (2)
  1. ENBREL [Suspect]
     Indication: RHEUMATOID ARTHRITIS
     Dosage: 50 MG, QWK
     Dates: start: 20110118, end: 20110928
  2. METHOTREXATE [Concomitant]
     Dosage: 6 MG, UNK
     Dates: start: 20090301

REACTIONS (6)
  - WEIGHT INCREASED [None]
  - FATIGUE [None]
  - URINARY TRACT INFECTION [None]
  - HYPERHIDROSIS [None]
  - ABDOMINAL DISTENSION [None]
  - MENSTRUATION IRREGULAR [None]
